FAERS Safety Report 14454016 (Version 6)
Quarter: 2024Q3

REPORT INFORMATION
  Report Type: Spontaneous
  Country: GB (occurrence: ES)
  Receive Date: 20180129
  Receipt Date: 20240917
  Transmission Date: 20241017
  Serious: Yes (Death, Hospitalization, Other)
  Sender: MYLAN
  Company Number: GB-SA-2017SA260998

PATIENT
  Age: 64 Year
  Sex: Male

DRUGS (15)
  1. LEUCOVORIN CALCIUM [Suspect]
     Active Substance: LEUCOVORIN CALCIUM
     Indication: Rectosigmoid cancer stage IV
     Dosage: UNK UNK, CYCLE
     Route: 065
  2. FLUOROURACIL [Suspect]
     Active Substance: FLUOROURACIL
     Indication: Rectosigmoid cancer stage IV
     Dosage: UNK, CYCLE
     Route: 065
  3. FLUOROURACIL [Suspect]
     Active Substance: FLUOROURACIL
     Dosage: UNK
     Route: 065
  4. CAPECITABINE [Suspect]
     Active Substance: CAPECITABINE
     Indication: Product used for unknown indication
     Dosage: UNK, CYCLE
     Route: 065
  5. OXALIPLATIN [Suspect]
     Active Substance: OXALIPLATIN
     Indication: Rectosigmoid cancer stage IV
     Dosage: UNK
     Route: 065
  6. IRINOTECAN [Suspect]
     Active Substance: IRINOTECAN
     Indication: Metastases to liver
     Dosage: UNK, CYCLE
     Route: 065
  7. IRINOTECAN [Suspect]
     Active Substance: IRINOTECAN
     Indication: Rectosigmoid cancer stage IV
  8. AFLIBERCEPT [Suspect]
     Active Substance: AFLIBERCEPT
     Indication: Metastases to liver
     Dosage: UNK, CYCLE
     Route: 065
  9. AFLIBERCEPT [Suspect]
     Active Substance: AFLIBERCEPT
     Indication: Rectosigmoid cancer stage IV
     Dosage: UNK, CYCLE
     Route: 065
  10. BEVACIZUMAB [Suspect]
     Active Substance: BEVACIZUMAB
     Indication: Rectosigmoid cancer stage IV
     Dosage: UNK, CYCLE
     Route: 065
  11. CETUXIMAB [Suspect]
     Active Substance: CETUXIMAB
     Indication: Rectosigmoid cancer stage IV
     Dosage: UNK, CYCLE
     Route: 065
  12. LEUCOVORIN [Suspect]
     Active Substance: LEUCOVORIN\LEUCOVORIN CALCIUM
     Indication: Rectosigmoid cancer stage IV
     Dosage: UNK
     Route: 065
  13. LEUCOVORIN [Suspect]
     Active Substance: LEUCOVORIN\LEUCOVORIN CALCIUM
     Indication: Metastases to liver
  14. FLUOROURACIL\LEUCOVORIN CALCIUM\OXALIPLATIN [Suspect]
     Active Substance: FLUOROURACIL\LEUCOVORIN CALCIUM\OXALIPLATIN
     Indication: Product used for unknown indication
     Dosage: UNK
     Route: 065
  15. FLUOROURACIL\IRINOTECAN\LEUCOVORIN [Suspect]
     Active Substance: FLUOROURACIL\IRINOTECAN\LEUCOVORIN
     Indication: Product used for unknown indication
     Dosage: UNK
     Route: 065

REACTIONS (25)
  - Fournier^s gangrene [Fatal]
  - Klebsiella infection [Fatal]
  - Candida infection [Fatal]
  - Proteus infection [Fatal]
  - Clostridial infection [Fatal]
  - Off label use [Fatal]
  - C-reactive protein increased [Recovered/Resolved]
  - Induration [Recovered/Resolved]
  - Prothrombin level decreased [Recovered/Resolved]
  - Erythema [Recovered/Resolved]
  - Tachycardia [Recovered/Resolved]
  - Tenderness [Recovered/Resolved]
  - Renal failure [Recovered/Resolved]
  - Leukocytosis [Recovered/Resolved]
  - Hypotension [Recovered/Resolved]
  - Blood lactic acid increased [Recovered/Resolved]
  - Chills [Recovered/Resolved]
  - Pyrexia [Recovered/Resolved]
  - Neutrophilia [Recovered/Resolved]
  - Inflammation [Recovered/Resolved]
  - Blood creatine phosphokinase increased [Recovered/Resolved]
  - Coagulopathy [Recovered/Resolved]
  - Blood creatinine increased [Recovered/Resolved]
  - Neoplasm progression [Unknown]
  - Musculoskeletal pain [Recovering/Resolving]
